FAERS Safety Report 5756452-8 (Version None)
Quarter: 2008Q2

REPORT INFORMATION
  Report Type: 
  Country: None (occurrence: None)
  Receive Date: 20080603
  Receipt Date: 20080529
  Transmission Date: 20081010
  Serious: Yes (Hospitalization)
  Sender: FDA-Public Use
  Company Number: FR-WYE-G01610908

PATIENT
  Sex: Female

DRUGS (2)
  1. EFFEXOR [Suspect]
     Indication: SOCIAL PHOBIA
     Route: 048
     Dates: start: 20071201
  2. YASMIN [Interacting]
     Indication: ORAL CONTRACEPTION
     Dosage: UNKNOWN
     Route: 048
     Dates: start: 20061101, end: 20080501

REACTIONS (2)
  - DRUG INTERACTION [None]
  - PULMONARY EMBOLISM [None]
